FAERS Safety Report 5486912-9 (Version None)
Quarter: 2007Q4

REPORT INFORMATION
  Report Type: 
  Country: None (occurrence: None)
  Receive Date: 20071016
  Receipt Date: 20071002
  Transmission Date: 20080405
  Serious: Yes (Other)
  Sender: FDA-Public Use
  Company Number: BE-ELI_LILLY_AND_COMPANY-BE200710000989

PATIENT
  Age: 82 Year
  Sex: Female

DRUGS (1)
  1. RALOXIFENE HYDROCHLORIDE [Suspect]
     Dosage: 60 MG, DAILY (1/D)
     Route: 048

REACTIONS (1)
  - BREAST CANCER [None]
